FAERS Safety Report 15362768 (Version 2)
Quarter: 2018Q3

REPORT INFORMATION
  Report Type: Spontaneous
  Country: BR (occurrence: BR)
  Receive Date: 20180907
  Receipt Date: 20180911
  Transmission Date: 20181010
  Serious: No
  Sender: FDA-Public Use
  Company Number: PHHY2018BR089588

PATIENT
  Sex: Female

DRUGS (3)
  1. RITALINA [Suspect]
     Active Substance: METHYLPHENIDATE HYDROCHLORIDE
     Indication: ATTENTION DEFICIT/HYPERACTIVITY DISORDER
     Dosage: 1 DF, BID (1 TABLET IN THE MORNING AND 1 IN THE AFTERNOON)
     Route: 065
  2. RITALINA [Suspect]
     Active Substance: METHYLPHENIDATE HYDROCHLORIDE
     Dosage: 0.5 DF, BID (HALF IN THE MORNING AND HALF IN THE AFTERNOON)
     Route: 065
  3. RITALINA [Suspect]
     Active Substance: METHYLPHENIDATE HYDROCHLORIDE
     Dosage: 0.5 DF, QD
     Route: 048
     Dates: start: 201710

REACTIONS (1)
  - Wrong technique in product usage process [Unknown]
